FAERS Safety Report 23100087 (Version 1)
Quarter: 2023Q4

REPORT INFORMATION
  Report Type: Spontaneous
  Country: US (occurrence: None)
  Receive Date: 20231023
  Receipt Date: 20231023
  Transmission Date: 20240110
  Serious: Yes (Disabling, Other)
  Sender: FDA-Public Use
  Company Number: None

PATIENT
  Age: 62 Year
  Sex: Female
  Weight: 73.35 kg

DRUGS (12)
  1. PANTOPRAZOLE SODIUM [Suspect]
     Active Substance: PANTOPRAZOLE SODIUM
     Indication: Gastrooesophageal reflux disease
     Dosage: OTHER QUANTITY : 90 TABLET(S);?
     Route: 048
  2. TRIAMTERENE [Concomitant]
     Active Substance: TRIAMTERENE
  3. Estrogen Methtest [Concomitant]
  4. HYDROXYCHLOROQUINE [Concomitant]
     Active Substance: HYDROXYCHLOROQUINE
  5. VITAMIN D2 [Concomitant]
     Active Substance: ERGOCALCIFEROL
  6. ALPRAZOLAM [Concomitant]
     Active Substance: ALPRAZOLAM
  7. CLOTRIMAZOLE TROCHE [Concomitant]
     Active Substance: CLOTRIMAZOLE
  8. Clobetasol Propionate Gel [Concomitant]
  9. TYLENOL [Concomitant]
     Active Substance: ACETAMINOPHEN
  10. Probiotic chewy gummies Tagamet [Concomitant]
  11. Mylanta Max Strength [Concomitant]
  12. PANTOPRAZOLE SODIUM [Suspect]
     Active Substance: PANTOPRAZOLE SODIUM
     Indication: Gastritis

REACTIONS (4)
  - Cutaneous lupus erythematosus [None]
  - Systemic lupus erythematosus [None]
  - Autoimmune disorder [None]
  - Oral lichen planus [None]

NARRATIVE: CASE EVENT DATE: 20230312
